FAERS Safety Report 9531959 (Version 2)
Quarter: 2014Q1

REPORT INFORMATION
  Report Type: Spontaneous
  Country: US (occurrence: US)
  Receive Date: 20130918
  Receipt Date: 20140221
  Transmission Date: 20141002
  Serious: Yes (Hospitalization, Other)
  Sender: FDA-Public Use
  Company Number: US-BAYER-2013-112620

PATIENT
  Age: 32 Year
  Sex: Female
  Weight: 58.96 kg

DRUGS (7)
  1. MIRENA [Suspect]
     Indication: CONTRACEPTION
     Dosage: 20 MCG/24HR, CONT
     Route: 015
     Dates: start: 2002, end: 2007
  2. MIRENA [Suspect]
     Indication: CONTRACEPTION
     Dosage: 20 MCG/24HR, CONT
     Route: 015
     Dates: start: 2007, end: 2008
  3. MIRENA [Suspect]
     Indication: CONTRACEPTION
     Dosage: 20 MCG/24HR, CONT
     Route: 015
     Dates: start: 20090914, end: 20110823
  4. MIRENA [Suspect]
     Indication: CONTRACEPTION
     Dosage: 20 MCG/24HR, CONT
     Route: 015
     Dates: start: 201109
  5. IBUPROFEN [Concomitant]
  6. DOXYCYCLINE [Concomitant]
  7. OXYCODONE [Concomitant]

REACTIONS (14)
  - Uterine perforation [None]
  - Bladder injury [None]
  - Drug dependence [None]
  - Pain [None]
  - Injury [None]
  - Emotional distress [None]
  - Medical device discomfort [None]
  - Psychological trauma [None]
  - Anxiety [None]
  - Sleep disorder [None]
  - Dyspareunia [None]
  - Libido disorder [None]
  - Infertility female [None]
  - Fear [None]
